FAERS Safety Report 9401909 (Version 2)
Quarter: 2013Q3

REPORT INFORMATION
  Report Type: Spontaneous
  Country: MX (occurrence: MX)
  Receive Date: 20130716
  Receipt Date: 20130724
  Transmission Date: 20140515
  Serious: Yes (Other)
  Sender: FDA-Public Use
  Company Number: MX-ROCHE-1242667

PATIENT
  Age: 10 Year
  Sex: Female

DRUGS (6)
  1. OMALIZUMAB [Suspect]
     Indication: ASTHMA
     Dosage: VIAL, 2 INJECTIONS
     Route: 058
     Dates: start: 20110505
  2. OMALIZUMAB [Suspect]
     Dosage: VIAL, HALF OF INITIAL DOSE
     Route: 058
     Dates: start: 20110629
  3. OMALIZUMAB [Suspect]
     Dosage: STRENGTH-1:50
     Route: 058
  4. OMALIZUMAB [Suspect]
     Dosage: STRENGTH - 1:50
     Route: 058
     Dates: start: 20121116
  5. BUDESONIDE/FORMOTEROL FUMARATE [Concomitant]
     Route: 065
  6. BUDESONIDE/FORMOTEROL FUMARATE [Concomitant]
     Dosage: 80/4.5
     Route: 065

REACTIONS (8)
  - Urticaria [Recovered/Resolved]
  - Hyperhidrosis [Recovered/Resolved]
  - Headache [Recovered/Resolved]
  - Dizziness [Unknown]
  - Nausea [Unknown]
  - Pallor [Unknown]
  - Blood pressure decreased [Recovered/Resolved]
  - Heart rate increased [Recovered/Resolved]
